FAERS Safety Report 8215316-0 (Version None)
Quarter: 2012Q1

REPORT INFORMATION
  Report Type: 
  Country: None (occurrence: None)
  Receive Date: 20120316
  Receipt Date: 20120306
  Transmission Date: 20120608
  Serious: Yes (Other)
  Sender: FDA-Public Use
  Company Number: DE-FRI-1000026515

PATIENT
  Sex: Female
  Weight: 71 kg

DRUGS (10)
  1. CITALOPRAM HYDROBROMIDE [Suspect]
     Indication: PAIN
     Dosage: 10 MG
     Route: 048
     Dates: start: 20110615
  2. PANTOPRAZOLE [Suspect]
     Indication: GASTROOESOPHAGEAL REFLUX DISEASE
     Dosage: 40 MG
     Route: 048
     Dates: end: 20110630
  3. DURAGESIC-100 [Suspect]
     Indication: RADICULAR PAIN
     Dosage: 600 MCG
     Route: 062
     Dates: start: 20110615, end: 20110617
  4. DURAGESIC-100 [Suspect]
     Dosage: 1200 MCG
     Route: 062
     Dates: start: 20110618, end: 20110703
  5. PANTOPRAZOLE [Suspect]
     Route: 048
  6. PANTOPRAZOLE [Suspect]
     Dosage: 80 MG
     Route: 048
     Dates: start: 20110701
  7. NOVALGIN [Concomitant]
     Indication: PAIN
     Dosage: 4000 MG
     Route: 048
  8. DURAGESIC-100 [Suspect]
     Indication: SCOLIOSIS
  9. DURAGESIC-100 [Suspect]
     Route: 062
  10. METOPROLOL TARTRATE AND HYDROCHLOROTHIAZIDE [Concomitant]
     Indication: HYPERTENSION
     Dosage: 195 MG
     Route: 048

REACTIONS (9)
  - SEROTONIN SYNDROME [None]
  - HYPONATRAEMIA [None]
  - CONTUSION [None]
  - POTENTIATING DRUG INTERACTION [None]
  - HYPERTENSIVE CRISIS [None]
  - DELIRIUM [None]
  - FALL [None]
  - OFF LABEL USE [None]
  - CONVULSION [None]
